FAERS Safety Report 5358351-2 (Version None)
Quarter: 2007Q2

REPORT INFORMATION
  Report Type: 
  Country: None (occurrence: None)
  Receive Date: 20070530
  Receipt Date: 20070207
  Transmission Date: 20071010
  Serious: Yes (Other)
  Sender: FDA-Public Use
  Company Number: US200601002945

PATIENT
  Age: 26 Year
  Sex: Male
  Weight: 140.6 kg

DRUGS (17)
  1. ZYPREXA [Suspect]
     Indication: BIPOLAR DISORDER
     Dosage: ORAL
     Route: 048
     Dates: start: 19990101
  2. TRAZODONE HCL [Concomitant]
  3. CELEXA [Concomitant]
  4. EFFEXOR XR [Concomitant]
  5. METHYLPREDNISOLONE [Concomitant]
  6. PREDNISONE [Concomitant]
  7. ZOCOR [Concomitant]
  8. ACCUPRIL [Concomitant]
  9. PRAVACHOL [Concomitant]
  10. SEROQUEL [Concomitant]
  11. CLONAZEPAM [Concomitant]
  12. ALTACE [Concomitant]
  13. EZETIMIBE [Concomitant]
  14. SIMVASTATIN [Concomitant]
  15. GEMFIBROZIL [Concomitant]
  16. DOXEPINE [Concomitant]
  17. LEXAPRO [Concomitant]

REACTIONS (3)
  - DIABETES MELLITUS NON-INSULIN-DEPENDENT [None]
  - PRESCRIBED OVERDOSE [None]
  - WEIGHT INCREASED [None]
